FAERS Safety Report 7652366 (Version 3)
Quarter: 2013Q2

REPORT INFORMATION
  Report Type: Spontaneous
  Country: NO (occurrence: None)
  Receive Date: 20101008
  Receipt Date: 20130404
  Transmission Date: 20140414
  Serious: Yes (Other)
  Sender: FDA-Public Use
  Company Number: 711472

PATIENT
  Age: 33 Year
  Sex: Male

DRUGS (19)
  1. VINCRISTINE SULFATE [Suspect]
     Indication: EWING^S SARCOMA
     Dosage: 2 MG MILLIGRAM(S),
     Dates: start: 20081215
  2. (ETOPOSIDE) [Suspect]
     Indication: EWING^S SARCOMA
     Dosage: 40 MG MILLIGRAM(S),
     Dates: start: 20081215
  3. CISPLATIN [Suspect]
     Indication: EWING^S SARCOMA
     Dosage: 300 MG MILLIGRAM(S),
  4. DOXORUBICIN HYDROCHLORIDE [Suspect]
     Indication: EWING^S SARCOMA
     Dates: start: 20081215
  5. IFOSFAMIDE [Suspect]
     Indication: EWING^S SARCOMA
     Dosage: 6200 MG MILLIGRAM(S),; 6000 MG MILLIGRAM(S),
     Dates: start: 20081126, end: 20081128
  6. MESNA [Suspect]
     Indication: EWING^S SARCOMA
     Dosage: 6000 MG MILLIGRAM(S),
     Dates: start: 20081215
  7. BLEOMYCIN SULFATE [Suspect]
     Indication: EWING^S SARCOMA
  8. DEXAMETHASONE [Concomitant]
  9. PARACETAMOL [Concomitant]
  10. FRAGMIN [Concomitant]
  11. KETALAR [Concomitant]
  12. ZOFRAN [Concomitant]
  13. DUPHALAC /00163401/ [Concomitant]
  14. EMEND /01627301/ [Concomitant]
  15. MORPHINE [Concomitant]
  16. ZOPICLONE [Concomitant]
  17. GLUCOSE [Concomitant]
  18. SODIUM BICARBONATE [Concomitant]
  19. KCL [Concomitant]

REACTIONS (4)
  - Restlessness [None]
  - Incoherent [None]
  - Confusional state [None]
  - Neurotoxicity [None]
